FAERS Safety Report 4397619-3 (Version None)
Quarter: 2004Q3

REPORT INFORMATION
  Report Type: 
  Country: None (occurrence: None)
  Receive Date: 20040712
  Receipt Date: 20040622
  Transmission Date: 20050211
  Serious: Yes (Life-Threatening, Hospitalization, Other)
  Sender: FDA-Public Use
  Company Number: EWC040639585

PATIENT
  Age: 52 Year
  Sex: Male
  Weight: 55 kg

DRUGS (7)
  1. GEMZAR [Suspect]
     Indication: CARCINOMA IN SITU
     Dosage: 2 G/1 OTHER
     Route: 050
     Dates: start: 20040603, end: 20040603
  2. CISPLATIN [Concomitant]
  3. THEOSPIREX (THEOPHYLLINE) [Concomitant]
  4. MEDROL [Concomitant]
  5. QUAMATEL (FAMOTIDINE) [Concomitant]
  6. KYTRIL [Concomitant]
  7. ACETYLCYSTEINE [Concomitant]

REACTIONS (3)
  - CARDIOPULMONARY FAILURE [None]
  - DIALYSIS [None]
  - RENAL FAILURE [None]
